FAERS Safety Report 6757845-2 (Version None)
Quarter: 2010Q2

REPORT INFORMATION
  Report Type: 
  Country: None (occurrence: None)
  Receive Date: 20100607
  Receipt Date: 20100528
  Transmission Date: 20101027
  Serious: Yes (Life-Threatening, Hospitalization, Other)
  Sender: FDA-Public Use
  Company Number: PHHO2007US11925

PATIENT
  Sex: Female
  Weight: 54.5 kg

DRUGS (15)
  1. CERTICAN [Suspect]
     Dosage: 0.75 MG, BID
     Route: 048
     Dates: start: 20050502, end: 20070417
  2. CERTICAN [Suspect]
     Dosage: 0.75 MG, BID
     Route: 048
     Dates: start: 20070423
  3. CERTICAN [Suspect]
     Dosage: UNK
  4. AVELOX [Suspect]
  5. PREDNISONE [Concomitant]
     Indication: RENAL TRANSPLANT
     Dosage: 5 MG, QD
     Route: 048
     Dates: start: 20020509
  6. NEORAL [Concomitant]
     Indication: RENAL TRANSPLANT
     Dosage: 50 MG DAILY
     Route: 048
     Dates: start: 20040127
  7. NEORAL [Concomitant]
     Dosage: 50 MG, BID
     Route: 048
     Dates: start: 20020509
  8. COLACE [Concomitant]
  9. ENALAPRIL [Concomitant]
     Indication: HYPERTENSION
  10. FOSAMAX [Concomitant]
     Indication: OSTEOPOROSIS
  11. LABETALOL HCL [Concomitant]
     Indication: HYPERTENSION
  12. OS-CAL [Concomitant]
     Indication: OSTEOPOROSIS
  13. PEPCID [Concomitant]
     Indication: GASTROOESOPHAGEAL REFLUX DISEASE
  14. SYNTHROID [Concomitant]
     Indication: HYPOTHYROIDISM
  15. CLARITIN [Concomitant]
     Indication: SEASONAL ALLERGY

REACTIONS (5)
  - ANAPHYLACTIC REACTION [None]
  - DRUG HYPERSENSITIVITY [None]
  - LIVER FUNCTION TEST ABNORMAL [None]
  - LOBAR PNEUMONIA [None]
  - LUNG INFILTRATION [None]
